FAERS Safety Report 15250122 (Version 1)
Quarter: 2018Q3

REPORT INFORMATION
  Report Type: Spontaneous
  Country: TW (occurrence: TW)
  Receive Date: 20180807
  Receipt Date: 20180807
  Transmission Date: 20181010
  Serious: Yes (Other)
  Sender: FDA-Public Use
  Company Number: TW-PFIZER INC-2017093134

PATIENT
  Age: 47 Year
  Sex: Male

DRUGS (3)
  1. SUTENT [Suspect]
     Active Substance: SUNITINIB MALATE
     Dosage: 25 MG,CYCLIC (TWICE A DAY FOR TWO WEEKS ON AND ONE WEEK OFF)
     Route: 048
  2. SUTENT [Suspect]
     Active Substance: SUNITINIB MALATE
     Indication: RENAL CELL CARCINOMA
     Dosage: 50 MG, CYCLIC (ONCE DAILY FOR TWO WEEKS ON AND ONE WEEK OFF)
     Route: 048
     Dates: start: 20160921
  3. SUTENT [Suspect]
     Active Substance: SUNITINIB MALATE
     Dosage: 37.5MG, CYCLIC (QD, TWO WEEKS ON AND ONE WEEK OFF)
     Route: 048
     Dates: end: 20180716

REACTIONS (8)
  - Blood pressure increased [Recovering/Resolving]
  - Skin discolouration [Unknown]
  - Hypogeusia [Recovering/Resolving]
  - Fatigue [Recovering/Resolving]
  - Palmar-plantar erythrodysaesthesia syndrome [Not Recovered/Not Resolved]
  - Retinal detachment [Unknown]
  - Diarrhoea [Not Recovered/Not Resolved]
  - Yellow skin [Recovering/Resolving]

NARRATIVE: CASE EVENT DATE: 2018
